FAERS Safety Report 8804000 (Version 1)
Quarter: 2012Q4

REPORT INFORMATION
  Report Type: 
  Country: US (occurrence: US)
  Receive Date: 20120924
  Receipt Date: 20120924
  Transmission Date: 20130627
  Serious: No
  Sender: FDA-Public Use
  Company Number: US-PFIZER INC-2012232504

PATIENT
  Age: 25 Year
  Sex: Female
  Weight: 58.96 kg

DRUGS (1)
  1. LEVOXYL [Suspect]
     Indication: HYPERTHYROIDISM
     Dosage: 75 ug, 1x/day
     Route: 048
     Dates: start: 201206, end: 201208

REACTIONS (1)
  - Hypersensitivity [Unknown]
